FAERS Safety Report 17324817 (Version 2)
Quarter: 2020Q1

REPORT INFORMATION
  Report Type: Spontaneous
  Country: US (occurrence: US)
  Receive Date: 20200127
  Receipt Date: 20200221
  Transmission Date: 20200409
  Serious: No
  Sender: FDA-Public Use
  Company Number: US-ASTRAZENECA-2020SE00712

PATIENT
  Age: 3261 Week
  Sex: Female

DRUGS (1)
  1. BYDUREON [Suspect]
     Active Substance: EXENATIDE
     Dosage: 2.0MG UNKNOWN
     Route: 065

REACTIONS (7)
  - Injection site pain [Unknown]
  - Incorrect dose administered by product [Not Recovered/Not Resolved]
  - Device leakage [Unknown]
  - Needle issue [Unknown]
  - Injection site pain [Recovered/Resolved]
  - Device use issue [Unknown]
  - Device issue [Unknown]

NARRATIVE: CASE EVENT DATE: 20191228
